FAERS Safety Report 7911828-5 (Version None)
Quarter: 2011Q4

REPORT INFORMATION
  Report Type: 
  Country: None (occurrence: None)
  Receive Date: 20111109
  Receipt Date: 20111030
  Transmission Date: 20120403
  Serious: Yes (Death, Hospitalization, Other)
  Sender: FDA-Public Use
  Company Number: ADR-2010-9324

PATIENT
  Sex: Male

DRUGS (2)
  1. LIORESAL [Suspect]
     Indication: MUSCLE SPASTICITY
     Dosage: SEE B5 MCG, DAILU, INTR
     Route: 037
  2. LIORESAL [Suspect]
     Indication: CEREBRAL PALSY
     Dosage: SEE B5 MCG, DAILU, INTR
     Route: 037

REACTIONS (16)
  - CLONUS [None]
  - SEPSIS [None]
  - MUSCULOSKELETAL STIFFNESS [None]
  - AGITATION [None]
  - MOANING [None]
  - HYPERTONIA [None]
  - PNEUMONIA [None]
  - DRUG WITHDRAWAL SYNDROME [None]
  - CONVULSION [None]
  - GRIMACING [None]
  - SHUNT MALFUNCTION [None]
  - NAUSEA [None]
  - DYSPNOEA [None]
  - MUSCLE TWITCHING [None]
  - VOMITING [None]
  - DEVICE OCCLUSION [None]
